FAERS Safety Report 20205157 (Version 1)
Quarter: 2021Q4

REPORT INFORMATION
  Report Type: Spontaneous
  Country: US (occurrence: None)
  Receive Date: 20211220
  Receipt Date: 20211220
  Transmission Date: 20220304
  Serious: No
  Sender: FDA-Public Use
  Company Number: US-MDD US Operations-SUP202109-001938

PATIENT
  Sex: Female

DRUGS (1)
  1. OXTELLAR XR [Suspect]
     Active Substance: OXCARBAZEPINE
     Indication: Product used for unknown indication
     Dosage: NOT PROVIDED

REACTIONS (10)
  - Rhinorrhoea [Unknown]
  - Oropharyngeal pain [Unknown]
  - Paraesthesia [Unknown]
  - Blood sodium decreased [Unknown]
  - Diplopia [Unknown]
  - Diarrhoea [Unknown]
  - Palpitations [Unknown]
  - Anxiety [Unknown]
  - Tinnitus [Unknown]
  - Asthenia [Unknown]
